FAERS Safety Report 4958644-4 (Version None)
Quarter: 2006Q1

REPORT INFORMATION
  Report Type: 
  Country: None (occurrence: None)
  Receive Date: 20060330
  Receipt Date: 20050930
  Transmission Date: 20060701
  Serious: Yes (Death, Hospitalization, Other)
  Sender: FDA-Public Use
  Company Number: US-MERCK-0510USA01387

PATIENT
  Age: 72 Year
  Sex: Male
  Weight: 95 kg

DRUGS (4)
  1. VIOXX [Suspect]
     Indication: BURSITIS
     Route: 048
     Dates: start: 20020903, end: 20020903
  2. VIOXX [Suspect]
     Route: 065
     Dates: start: 20020916, end: 20021005
  3. VIOXX [Suspect]
     Indication: ARTHRALGIA
     Route: 048
     Dates: start: 20020903, end: 20020903
  4. VIOXX [Suspect]
     Route: 065
     Dates: start: 20020916, end: 20021005

REACTIONS (6)
  - CORONARY ARTERY STENOSIS [None]
  - DEATH [None]
  - HEADACHE [None]
  - INTESTINAL FUNCTIONAL DISORDER [None]
  - MYOCARDIAL INFARCTION [None]
  - RENAL FAILURE [None]
